FAERS Safety Report 25975736 (Version 1)
Quarter: 2025Q4

REPORT INFORMATION
  Report Type: Spontaneous
  Country: CN (occurrence: CN)
  Receive Date: 20251029
  Receipt Date: 20251029
  Transmission Date: 20260118
  Serious: Yes (Hospitalization)
  Sender: COHERUS
  Company Number: CN-SHANGHAI JUNSHI BIOSCIENCES CO., LTD.-CN2025016215

PATIENT

DRUGS (4)
  1. TORIPALIMAB [Suspect]
     Active Substance: TORIPALIMAB
     Indication: Breast cancer
     Dosage: 240 MG, Q3W
     Route: 041
     Dates: start: 20251001, end: 20251001
  2. CARBOPLATIN [Suspect]
     Active Substance: CARBOPLATIN
     Indication: Breast cancer
     Dosage: 600 MG, Q3W
     Route: 041
     Dates: start: 20251001, end: 20251001
  3. PACLITAXEL [Suspect]
     Active Substance: PACLITAXEL
     Indication: Breast cancer
     Dosage: 200 MG, Q3W
     Route: 041
     Dates: start: 20251001, end: 20251001
  4. PACLITAXEL [Suspect]
     Active Substance: PACLITAXEL
     Dosage: 200 MG, Q3W
     Route: 041
     Dates: start: 20251008, end: 20251008

REACTIONS (1)
  - Myelosuppression [Recovering/Resolving]

NARRATIVE: CASE EVENT DATE: 20251017
